FAERS Safety Report 9697260 (Version 1)
Quarter: 2013Q4

REPORT INFORMATION
  Report Type: Spontaneous
  Country: FR (occurrence: FR)
  Receive Date: 20131120
  Receipt Date: 20131120
  Transmission Date: 20140711
  Serious: Yes (Hospitalization)
  Sender: FDA-Public Use
  Company Number: FR-ASTRAZENECA-2013SE83847

PATIENT
  Age: 30647 Day
  Sex: Male

DRUGS (5)
  1. BRILIQUE [Suspect]
     Route: 048
     Dates: start: 20130916
  2. TAHOR [Suspect]
     Route: 048
     Dates: start: 20130916
  3. LASILIX [Suspect]
     Route: 048
     Dates: start: 20130916
  4. PERINDOPRIL [Suspect]
     Route: 048
     Dates: start: 20130916
  5. BISOPROLOL [Suspect]
     Route: 048
     Dates: start: 20130916

REACTIONS (1)
  - Hepatitis cholestatic [Recovered/Resolved]
